FAERS Safety Report 8806629 (Version 1)
Quarter: 2012Q4

REPORT INFORMATION
  Report Type: Spontaneous
  Country: GB (occurrence: None)
  Receive Date: 20120919
  Receipt Date: 20120919
  Transmission Date: 20130627
  Serious: Yes (Disabling, Other)
  Sender: FDA-Public Use
  Company Number: 2012AP002907

PATIENT
  Age: 66 Year
  Sex: Female

DRUGS (6)
  1. OMEPRAZOLE (OMEPRAZOLE) [Suspect]
     Dates: start: 20120820
  2. VOLUMATIC [Concomitant]
  3. AMOXICILLIN [Concomitant]
  4. CANDESARTAN [Concomitant]
  5. ERYTHROMYCIN [Concomitant]
  6. VENTOLINE [Concomitant]

REACTIONS (3)
  - Blood pressure increased [None]
  - Dizziness [None]
  - Wheezing [None]
